FAERS Safety Report 9067152 (Version 1)
Quarter: 2013Q1

REPORT INFORMATION
  Report Type: Spontaneous
  Country: VE (occurrence: VE)
  Receive Date: 20130214
  Receipt Date: 20130214
  Transmission Date: 20140127
  Serious: Yes (Death, Other)
  Sender: FDA-Public Use
  Company Number: PHHY2011VE117867

PATIENT
  Age: 72 Year
  Sex: Male

DRUGS (1)
  1. DIOVAN PROTECT [Suspect]
     Dosage: UNK UKN, UNK

REACTIONS (2)
  - Cerebrovascular accident [Fatal]
  - Diabetes mellitus [Unknown]
